FAERS Safety Report 24923935 (Version 1)
Quarter: 2025Q1

REPORT INFORMATION
  Report Type: Spontaneous
  Country: US (occurrence: US)
  Receive Date: 20250204
  Receipt Date: 20250204
  Transmission Date: 20250408
  Serious: No
  Sender: ALEXION PHARMACEUTICALS
  Company Number: US-AstraZeneca-CH-00798884AP

PATIENT

DRUGS (1)
  1. BREZTRI [Suspect]
     Active Substance: BUDESONIDE\FORMOTEROL\GLYCOPYRROLATE
     Route: 065

REACTIONS (9)
  - Wrong technique in device usage process [Unknown]
  - Dysphonia [Unknown]
  - Oropharyngeal pain [Unknown]
  - Cough [Unknown]
  - Dysphagia [Unknown]
  - Dyspnoea [Unknown]
  - Oral pain [Unknown]
  - Insomnia [Unknown]
  - Incorrect dose administered [Unknown]
